APPROVED DRUG PRODUCT: CHLOROMYCETIN HYDROCORTISONE
Active Ingredient: CHLORAMPHENICOL; HYDROCORTISONE ACETATE
Strength: 12.5MG/VIAL;25MG/VIAL
Dosage Form/Route: FOR SUSPENSION;OPHTHALMIC
Application: N050202 | Product #001
Applicant: PARKEDALE PHARMACEUTICALS INC
Approved: Approved Prior to Jan 1, 1982 | RLD: No | RS: No | Type: DISCN